FAERS Safety Report 15998419 (Version 1)
Quarter: 2019Q1

REPORT INFORMATION
  Report Type: Spontaneous
  Country: US (occurrence: US)
  Receive Date: 20190223
  Receipt Date: 20190223
  Transmission Date: 20190418
  Serious: No
  Sender: FDA-Public Use
  Company Number: US-009507513-1902USA009083

PATIENT
  Age: 54 Year
  Sex: Female

DRUGS (13)
  1. INTRON A [Suspect]
     Active Substance: INTERFERON ALFA-2B
     Indication: RENAL NEOPLASM
     Dosage: 0.5 MILLILITER, QOW
     Route: 058
     Dates: start: 20181213
  2. ASPIRIN. [Concomitant]
     Active Substance: ASPIRIN
     Dosage: UNK
     Route: 048
     Dates: start: 20171202
  3. DARZALEX [Concomitant]
     Active Substance: DARATUMUMAB
     Dosage: SOLUTION; 400MG/20
     Route: 042
     Dates: start: 20171108
  4. OMEPRAZOLE. [Concomitant]
     Active Substance: OMEPRAZOLE
     Dosage: UNK
     Route: 048
     Dates: start: 20180219
  5. PROAIR HFA [Concomitant]
     Active Substance: ALBUTEROL SULFATE
     Dosage: UNK, PRN
     Route: 055
     Dates: start: 20171108
  6. ALLEGRA D-12 HOUR [Concomitant]
     Active Substance: FEXOFENADINE HYDROCHLORIDE\PSEUDOEPHEDRINE HYDROCHLORIDE
     Dosage: UNK
     Route: 048
     Dates: start: 20171108
  7. CALTRATE 600 PLUS D3 PLUS MINERALS [Concomitant]
     Dosage: UNK
     Route: 048
     Dates: start: 20171108
  8. NASONEX [Concomitant]
     Active Substance: MOMETASONE FUROATE
     Dosage: 50 MCG/AC; INHALATION
     Route: 055
     Dates: start: 20171108
  9. COLACE [Concomitant]
     Active Substance: DOCUSATE SODIUM
     Dosage: PERCOLACE
     Route: 048
     Dates: start: 20180219
  10. DEXAMETHASONE. [Concomitant]
     Active Substance: DEXAMETHASONE
     Dosage: SOLUTION
     Route: 048
     Dates: start: 20171108
  11. ZOMETA [Concomitant]
     Active Substance: ZOLEDRONIC ACID
     Dosage: EVERY 3 MONTHS
     Route: 042
     Dates: start: 20180219
  12. REVLIMID [Concomitant]
     Active Substance: LENALIDOMIDE
  13. ACYCLOVIR. [Concomitant]
     Active Substance: ACYCLOVIR
     Dosage: UNK
     Route: 048
     Dates: start: 20171108

REACTIONS (1)
  - Adverse event [Unknown]

NARRATIVE: CASE EVENT DATE: 20190219
